FAERS Safety Report 22712595 (Version 8)
Quarter: 2023Q4

REPORT INFORMATION
  Report Type: Report from Study
  Country: FR (occurrence: FR)
  Receive Date: 20230717
  Receipt Date: 20231218
  Transmission Date: 20240109
  Serious: Yes (Hospitalization)
  Sender: FDA-Public Use
  Company Number: FR-SA-SAC20230712000184

PATIENT
  Age: 68 Year
  Sex: Female
  Weight: 38 kg

DRUGS (3)
  1. ISATUXIMAB [Suspect]
     Active Substance: ISATUXIMAB
     Indication: Primary amyloidosis
     Dosage: 380 MG, QW
     Route: 042
     Dates: start: 20230629, end: 20230629
  2. POMALIDOMIDE [Suspect]
     Active Substance: POMALIDOMIDE
     Indication: Primary amyloidosis
     Dosage: 9 MG, (DAY 1-21)
     Route: 048
     Dates: start: 20230629, end: 20230629
  3. DEXAMETHASONE [Suspect]
     Active Substance: DEXAMETHASONE
     Indication: Primary amyloidosis
     Dosage: 20 MG, QW
     Route: 048
     Dates: start: 20230629, end: 20230629

REACTIONS (2)
  - Diarrhoea [Not Recovered/Not Resolved]
  - Malaise [Recovered/Resolved]

NARRATIVE: CASE EVENT DATE: 20230709
